FAERS Safety Report 10697584 (Version 1)
Quarter: 2015Q1

REPORT INFORMATION
  Report Type: Spontaneous
  Country: ES (occurrence: ES)
  Receive Date: 20150108
  Receipt Date: 20150108
  Transmission Date: 20150721
  Serious: Yes (Other)
  Sender: FDA-Public Use
  Company Number: ES-ASTRAZENECA-2015SE00728

PATIENT
  Age: 76 Year
  Sex: Female

DRUGS (7)
  1. CAFINITRINA [Concomitant]
     Route: 060
     Dates: start: 2014
  2. CLOPIDOGREL [Concomitant]
     Active Substance: CLOPIDOGREL BISULFATE
     Dates: start: 2014
  3. CRESTOR [Suspect]
     Active Substance: ROSUVASTATIN CALCIUM
     Indication: HYPERCHOLESTEROLAEMIA
     Route: 048
     Dates: start: 20140123
  4. EMCONCOR COR [Concomitant]
     Active Substance: BISOPROLOL
     Dates: start: 201406
  5. PANTOPRAZOLE [Concomitant]
     Active Substance: PANTOPRAZOLE SODIUM
  6. TROMALYT 150 [Concomitant]
     Dates: start: 2009
  7. ACOVIL [Concomitant]
     Active Substance: PHENIRAMINE
     Dates: start: 2014

REACTIONS (1)
  - Hepatitis cholestatic [Recovering/Resolving]

NARRATIVE: CASE EVENT DATE: 20141128
